FAERS Safety Report 17861857 (Version 1)
Quarter: 2020Q2

REPORT INFORMATION
  Report Type: Spontaneous
  Country: GB (occurrence: GB)
  Receive Date: 20200604
  Receipt Date: 20200604
  Transmission Date: 20200714
  Serious: Yes (Other)
  Sender: FDA-Public Use
  Company Number: NVSC2020GB154823

PATIENT
  Age: 43 Year

DRUGS (2)
  1. PREDNISOLONE. [Suspect]
     Active Substance: PREDNISOLONE
     Indication: LYMPHOCYTIC LYMPHOMA
     Dosage: UNK
     Route: 048
  2. AZATHIOPRINE. [Suspect]
     Active Substance: AZATHIOPRINE
     Indication: LYMPHOCYTIC LYMPHOMA
     Dosage: UNK
     Route: 048

REACTIONS (4)
  - Cardiac sarcoidosis [Unknown]
  - Neurosarcoidosis [Unknown]
  - Product use in unapproved indication [Unknown]
  - Brain stem infarction [Unknown]

NARRATIVE: CASE EVENT DATE: 2016
